FAERS Safety Report 16897827 (Version 1)
Quarter: 2019Q4

REPORT INFORMATION
  Report Type: Spontaneous
  Country: US (occurrence: US)
  Receive Date: 20191009
  Receipt Date: 20191009
  Transmission Date: 20200122
  Serious: No
  Sender: FDA-Public Use
  Company Number: US-SHIRE-US201932200

PATIENT
  Age: 59 Year
  Sex: Female
  Weight: 66 kg

DRUGS (1)
  1. FIRAZYR [Suspect]
     Active Substance: ICATIBANT ACETATE
     Indication: IMMUNE SYSTEM DISORDER
     Dosage: 30 MILLIGRAM, EVERY 6HR MAXIMUM 3 DOSES IN 24 HR.
     Route: 058
     Dates: start: 20190702

REACTIONS (2)
  - Dizziness [Unknown]
  - Rash [Unknown]

NARRATIVE: CASE EVENT DATE: 20190927
